FAERS Safety Report 8306587-0 (Version None)
Quarter: 2012Q2

REPORT INFORMATION
  Report Type: 
  Country: None (occurrence: None)
  Receive Date: 20120424
  Receipt Date: 20120416
  Transmission Date: 20120825
  Serious: Yes (Other)
  Sender: FDA-Public Use
  Company Number: US-BAYER-2012-036947

PATIENT
  Sex: Female

DRUGS (1)
  1. MIRENA [Suspect]
     Indication: PRODUCT USED FOR UNKNOWN INDICATION
     Dosage: 20 ?G/D, CONT
     Route: 015
     Dates: start: 20090101

REACTIONS (7)
  - DYSPAREUNIA [None]
  - DEVICE EXPULSION [None]
  - ABDOMINAL DISTENSION [None]
  - GENITAL HAEMORRHAGE [None]
  - VAGINAL DISCHARGE [None]
  - ABDOMINAL PAIN LOWER [None]
  - AMENORRHOEA [None]
